FAERS Safety Report 22074731 (Version 2)
Quarter: 2023Q1

REPORT INFORMATION
  Report Type: Spontaneous
  Country: IL (occurrence: None)
  Receive Date: 20230308
  Receipt Date: 20230309
  Transmission Date: 20230418
  Serious: Yes (Other)
  Sender: FDA-Public Use
  Company Number: 2023A034463

PATIENT
  Sex: Female

DRUGS (2)
  1. TAGRISSO [Suspect]
     Active Substance: OSIMERTINIB
     Indication: Lung carcinoma cell type unspecified stage IV
     Route: 048
     Dates: start: 202004
  2. TAGRISSO [Suspect]
     Active Substance: OSIMERTINIB
     Indication: Lung carcinoma cell type unspecified stage IV
     Dosage: 40.0MG UNKNOWN
     Route: 048

REACTIONS (19)
  - Myalgia [Unknown]
  - Metastasis [Unknown]
  - Fungal skin infection [Unknown]
  - Onychomycosis [Unknown]
  - Muscle spasms [Unknown]
  - Neuropathy peripheral [Unknown]
  - Rhinorrhoea [Unknown]
  - Gastrointestinal disorder [Unknown]
  - Thirst [Unknown]
  - Diarrhoea [Unknown]
  - Pruritus [Unknown]
  - Stomatitis [Unknown]
  - Skin fissures [Unknown]
  - Onychoclasis [Unknown]
  - Oral mucosal eruption [Unknown]
  - Pain in extremity [Unknown]
  - Abdominal pain upper [Unknown]
  - Dry skin [Unknown]
  - Expired product administered [Unknown]
